FAERS Safety Report 11181000 (Version 1)
Quarter: 2015Q2

REPORT INFORMATION
  Report Type: Spontaneous
  Country: US (occurrence: US)
  Receive Date: 20150611
  Receipt Date: 20150611
  Transmission Date: 20150821
  Serious: Yes (Other)
  Sender: FDA-Public Use
  Company Number: US-RB-078450-15

PATIENT
  Age: 8 Year
  Sex: Male

DRUGS (1)
  1. BENZOCAINE. [Suspect]
     Active Substance: BENZOCAINE
     Indication: LOCAL ANAESTHESIA
     Route: 065

REACTIONS (2)
  - Cyanosis [Recovered/Resolved]
  - Methaemoglobinaemia [Recovered/Resolved]
